FAERS Safety Report 12486161 (Version 4)
Quarter: 2016Q3

REPORT INFORMATION
  Report Type: Report from Study
  Country: US (occurrence: US)
  Receive Date: 20160621
  Receipt Date: 20160919
  Transmission Date: 20161109
  Serious: Yes (Hospitalization, Other)
  Sender: FDA-Public Use
  Company Number: US-GILEAD-2016-0218878

PATIENT
  Age: 28 Year
  Sex: Female
  Weight: 63.5 kg

DRUGS (13)
  1. AMBRISENTAN [Suspect]
     Active Substance: AMBRISENTAN
     Indication: PULMONARY ARTERIAL HYPERTENSION
     Dosage: 10 MG, QD
     Route: 048
  2. SELEXIPAG [Concomitant]
     Active Substance: SELEXIPAG
     Dosage: UNK
     Dates: start: 20160604
  3. ADCIRCA [Suspect]
     Active Substance: TADALAFIL
     Indication: PULMONARY ARTERIAL HYPERTENSION
     Dosage: 40 MG, QD
     Route: 048
  4. OXYGEN. [Concomitant]
     Active Substance: OXYGEN
     Dosage: UNK
     Dates: start: 20151219
  5. XARELTO [Concomitant]
     Active Substance: RIVAROXABAN
     Dosage: UNK
     Dates: start: 201512, end: 20160522
  6. TYVASO [Suspect]
     Active Substance: TREPROSTINIL
     Indication: PULMONARY ARTERIAL HYPERTENSION
     Dosage: 54 UG, QID
     Route: 055
     Dates: start: 20150325, end: 20160611
  7. TYVASO [Suspect]
     Active Substance: TREPROSTINIL
     Dosage: 18-54 UG, QID
     Route: 055
     Dates: start: 20160212
  8. LASIX [Concomitant]
     Active Substance: FUROSEMIDE
     Dosage: UNK
     Dates: start: 20160131
  9. VITAMIN B12 [Concomitant]
     Active Substance: CYANOCOBALAMIN
     Dosage: UNK
     Dates: start: 20160205
  10. MULTIVITAMIN                       /00097801/ [Concomitant]
     Active Substance: VITAMINS
     Dosage: UNK
     Dates: start: 20160205
  11. BERAPROST SODIUM [Suspect]
     Active Substance: BERAPROST SODIUM
     Indication: PULMONARY ARTERIAL HYPERTENSION
     Dosage: 30 UG, QID
     Route: 048
     Dates: start: 20150701
  12. TYVASO [Suspect]
     Active Substance: TREPROSTINIL
     Dosage: UNK
  13. TYVASO [Suspect]
     Active Substance: TREPROSTINIL
     Dosage: 18 UG, QID

REACTIONS (8)
  - Right ventricular failure [Unknown]
  - Malaise [Unknown]
  - Abdominal pain [Unknown]
  - Headache [Recovered/Resolved]
  - Pulmonary arterial hypertension [Recovered/Resolved]
  - Petechiae [Unknown]
  - Neck pain [Unknown]
  - Pulmonary thrombosis [Unknown]

NARRATIVE: CASE EVENT DATE: 2015
